FAERS Safety Report 6013750-0 (Version None)
Quarter: 2008Q4

REPORT INFORMATION
  Report Type: 
  Country: None (occurrence: None)
  Receive Date: 20081219
  Receipt Date: 20081210
  Transmission Date: 20090506
  Serious: Yes (Hospitalization)
  Sender: FDA-Public Use
  Company Number: B0549832A

PATIENT
  Sex: Female

DRUGS (4)
  1. BECOTIDE 250 MCG [Suspect]
     Indication: ASTHMA
     Dosage: 1UNIT PER DAY
     Route: 055
     Dates: start: 19920101
  2. REVAXIS [Suspect]
     Indication: PROPHYLAXIS
     Route: 030
     Dates: start: 20080728, end: 20080728
  3. LEVOTHYROX [Suspect]
     Indication: HYPOTHYROIDISM
     Dosage: 1UNIT PER DAY
     Route: 048
     Dates: start: 20050101
  4. NASONEX [Suspect]
     Dosage: 1UNIT PER DAY
     Route: 055
     Dates: start: 19920101

REACTIONS (12)
  - ACUTE ABDOMEN [None]
  - ALANINE AMINOTRANSFERASE INCREASED [None]
  - ASPARTATE AMINOTRANSFERASE INCREASED [None]
  - BLOOD ALKALINE PHOSPHATASE INCREASED [None]
  - CHOLESTASIS [None]
  - GAMMA-GLUTAMYLTRANSFERASE INCREASED [None]
  - HEPATOCELLULAR INJURY [None]
  - INFLUENZA LIKE ILLNESS [None]
  - LEUKOCYTOCLASTIC VASCULITIS [None]
  - LICHENOID KERATOSIS [None]
  - PANCREATITIS ACUTE [None]
  - RASH MACULO-PAPULAR [None]
